FAERS Safety Report 8281758-0 (Version None)
Quarter: 2012Q2

REPORT INFORMATION
  Report Type: 
  Country: None (occurrence: None)
  Receive Date: 20120413
  Receipt Date: 20120404
  Transmission Date: 20120825
  Serious: Yes (Hospitalization, Disabling, Other)
  Sender: FDA-Public Use
  Company Number: US-BAYER-2011-064238

PATIENT
  Age: 48 Year
  Sex: Female
  Weight: 55.8 kg

DRUGS (16)
  1. GABAPENTIN [Concomitant]
     Indication: PAIN
     Dosage: 100 MG, TID
     Route: 048
  2. METRONIDAZOLE [Concomitant]
     Dosage: UNK UNK, BID
     Route: 061
  3. YASMIN [Suspect]
     Indication: CONTRACEPTION
     Dosage: UNK
     Route: 048
     Dates: start: 20050501, end: 20070201
  4. MINOCYCLINE HCL [Concomitant]
     Indication: ROSACEA
     Dosage: 100 MG, BID
     Route: 048
  5. OMEPRAZOLE [Concomitant]
     Dosage: 20 MG, QD
     Route: 048
  6. NITROFURANTOIN [Concomitant]
     Dosage: 50 MG, UNK
     Route: 048
  7. TRAZODONE HCL [Concomitant]
     Dosage: 50 MG, HS
     Route: 048
  8. LEVAQUIN [Concomitant]
     Indication: URINARY TRACT INFECTION
     Dosage: 500 MG, QD
     Route: 048
  9. CELECOXIB [Concomitant]
     Dosage: 200 MG, QD
     Route: 048
  10. CETIRIZINE [Concomitant]
     Dosage: 10 MG, BID
     Route: 048
  11. CELEBREX [Concomitant]
  12. TRAMADOL HCL [Concomitant]
     Indication: PAIN
     Dosage: 50 MG, PRN
     Route: 048
  13. AMBIEN [Concomitant]
  14. OXYCODONE HCL [Concomitant]
  15. CIPROFLOXACIN HYDROCHLORIDE [Concomitant]
     Dosage: 500 MG, BID
     Route: 048
  16. MODAFINIL [Concomitant]
     Indication: ROSACEA
     Dosage: 200 MG, UNK
     Route: 048

REACTIONS (8)
  - CEREBROVASCULAR ACCIDENT [None]
  - APHASIA [None]
  - PAIN [None]
  - COGNITIVE DISORDER [None]
  - DEEP VEIN THROMBOSIS [None]
  - PULMONARY EMBOLISM [None]
  - TRANSIENT ISCHAEMIC ATTACK [None]
  - VISUAL IMPAIRMENT [None]
